FAERS Safety Report 4785327-6 (Version None)
Quarter: 2005Q3

REPORT INFORMATION
  Report Type: 
  Country: None (occurrence: None)
  Receive Date: 20050929
  Receipt Date: 20050916
  Transmission Date: 20060218
  Serious: Yes (Other)
  Sender: FDA-Public Use
  Company Number: 2005132634

PATIENT
  Age: 54 Year
  Sex: Female

DRUGS (6)
  1. EPIRUBICIN HYDROCHLORIDE [Suspect]
     Indication: BREAST CANCER
     Dosage: 110 MG (DAILY), INTRAVENOUS
     Route: 042
  2. DEXAMETHASONE [Concomitant]
  3. CYCLOPHOSPHAMIDE [Concomitant]
  4. GRANISETRON (GRANISETRON) [Concomitant]
  5. DIPHENHYDRAMINE HCL [Concomitant]
  6. MORPHINE [Concomitant]

REACTIONS (3)
  - DERMATITIS BULLOUS [None]
  - PEMPHIGUS [None]
  - RASH [None]
